FAERS Safety Report 4319944-4 (Version None)
Quarter: 2004Q1

REPORT INFORMATION
  Report Type: 
  Country: None (occurrence: None)
  Receive Date: 20040316
  Receipt Date: 20040305
  Transmission Date: 20041129
  Serious: Yes (Hospitalization)
  Sender: FDA-Public Use
  Company Number: GB-JNJFOC-20040301520

PATIENT
  Age: 39 Year
  Sex: Male

DRUGS (2)
  1. RISPERDAL [Suspect]
     Indication: DRUG USE FOR UNKNOWN INDICATION
     Dosage: 1 MG, IN 1 DAY
     Dates: start: 20030603, end: 20030619
  2. NARDIL [Suspect]
     Indication: DRUG USE FOR UNKNOWN INDICATION
     Dosage: 60 MG, IN 1 DAY, ORAL
     Route: 048
     Dates: start: 20030603

REACTIONS (4)
  - BIPOLAR I DISORDER [None]
  - DRUG INTERACTION [None]
  - HALLUCINATION, AUDITORY [None]
  - PSYCHOTIC DISORDER [None]
